FAERS Safety Report 10641795 (Version 2)
Quarter: 2014Q4

REPORT INFORMATION
  Report Type: Report from Study
  Country: US (occurrence: US)
  Receive Date: 20141209
  Receipt Date: 20141209
  Transmission Date: 20150529
  Serious: Yes (Hospitalization, Other)
  Sender: FDA-Public Use
  Company Number: US-ASTRAZENECA-2013SE64426

PATIENT
  Age: 62 Year
  Sex: Female
  Weight: 55.3 kg

DRUGS (28)
  1. METOPROLOL TARTRATE. [Suspect]
     Active Substance: METOPROLOL TARTRATE
     Indication: BLOOD PRESSURE
     Route: 048
  2. LIPITOR [Concomitant]
     Active Substance: ATORVASTATIN CALCIUM
     Indication: BLOOD CHOLESTEROL INCREASED
     Route: 048
     Dates: start: 20130813
  3. ASPIRIN. [Concomitant]
     Active Substance: ASPIRIN
  4. TOPROL XL [Suspect]
     Active Substance: METOPROLOL SUCCINATE
     Indication: BLOOD PRESSURE
     Route: 048
  5. LYRICA [Concomitant]
     Active Substance: PREGABALIN
     Indication: BACK PAIN
     Route: 048
     Dates: start: 2011
  6. LYRICA [Concomitant]
     Active Substance: PREGABALIN
     Indication: BACK PAIN
     Route: 048
  7. HYPOTHYROIDISM MEDICATION [Concomitant]
     Indication: HYPOTHYROIDISM
  8. TOPROL XL [Suspect]
     Active Substance: METOPROLOL SUCCINATE
     Indication: BLOOD PRESSURE
     Route: 048
     Dates: start: 201308, end: 20140220
  9. PRILOSEC OTC [Suspect]
     Active Substance: OMEPRAZOLE MAGNESIUM
     Indication: GASTROOESOPHAGEAL REFLUX DISEASE
     Route: 048
     Dates: start: 201306, end: 201307
  10. BRILINTA [Suspect]
     Active Substance: TICAGRELOR
     Indication: MYOCARDIAL INFARCTION
     Route: 048
     Dates: start: 20130813
  11. BRILINTA [Suspect]
     Active Substance: TICAGRELOR
     Indication: CARDIAC DISORDER
     Route: 048
     Dates: end: 201408
  12. PAXIL [Concomitant]
     Active Substance: PAROXETINE HYDROCHLORIDE
     Indication: PANIC ATTACK
  13. LISINOPRIL. [Suspect]
     Active Substance: LISINOPRIL
     Indication: BLOOD PRESSURE
     Route: 048
     Dates: start: 201308
  14. XANAX [Concomitant]
     Active Substance: ALPRAZOLAM
     Indication: PANIC ATTACK
  15. DYAZIDE [Concomitant]
     Active Substance: HYDROCHLOROTHIAZIDE\TRIAMTERENE
     Dosage: 3705 MG/25MG DAILY
  16. BRILINTA [Suspect]
     Active Substance: TICAGRELOR
     Indication: MYOCARDIAL INFARCTION
     Route: 048
     Dates: end: 201408
  17. LYRICA [Concomitant]
     Active Substance: PREGABALIN
     Indication: BACK PAIN
     Route: 048
  18. GABAPENTIN. [Concomitant]
     Active Substance: GABAPENTIN
     Indication: BACK DISORDER
  19. HYPOTHYROIDISM MEDICATION [Concomitant]
     Indication: HYPOTHYROIDISM
  20. NEXIUM [Suspect]
     Active Substance: ESOMEPRAZOLE MAGNESIUM
     Indication: GASTROOESOPHAGEAL REFLUX DISEASE
     Route: 048
     Dates: start: 2010, end: 2010
  21. SINGULAIR [Concomitant]
     Active Substance: MONTELUKAST SODIUM
     Indication: MULTIPLE ALLERGIES
     Route: 048
  22. DYAZIDE [Concomitant]
     Active Substance: HYDROCHLOROTHIAZIDE\TRIAMTERENE
     Dosage: 3705 MG/25MG THREE TIMES A WEEK
  23. INHALER [Concomitant]
     Active Substance: UNSPECIFIED INGREDIENT
     Indication: PROPHYLAXIS
     Dosage: ONE PUFF PRN
     Route: 055
  24. CRESTOR [Suspect]
     Active Substance: ROSUVASTATIN CALCIUM
     Indication: BLOOD CHOLESTEROL ABNORMAL
     Route: 048
     Dates: end: 20140220
  25. CRESTOR [Suspect]
     Active Substance: ROSUVASTATIN CALCIUM
     Indication: BLOOD CHOLESTEROL ABNORMAL
     Route: 048
     Dates: start: 20140220
  26. NEXIUM [Suspect]
     Active Substance: ESOMEPRAZOLE MAGNESIUM
     Indication: GASTROOESOPHAGEAL REFLUX DISEASE
     Route: 048
     Dates: start: 20130725
  27. BRILINTA [Suspect]
     Active Substance: TICAGRELOR
     Indication: CARDIAC DISORDER
     Route: 048
     Dates: start: 20130813
  28. HYPOTHYROIDISM MEDICATION [Concomitant]
     Indication: HYPOTHYROIDISM

REACTIONS (30)
  - Weight decreased [Unknown]
  - Spinal column stenosis [Unknown]
  - Myocardial infarction [Unknown]
  - Fall [Unknown]
  - Contusion [Recovered/Resolved]
  - Dehydration [Recovered/Resolved]
  - Neck injury [Unknown]
  - Therapy cessation [Unknown]
  - Nerve injury [Unknown]
  - Hypometabolism [Recovered/Resolved]
  - Complex regional pain syndrome [Not Recovered/Not Resolved]
  - Depression [Recovered/Resolved]
  - Anxiety [Unknown]
  - Hypotension [Unknown]
  - Memory impairment [Unknown]
  - Panic attack [Unknown]
  - Gastric disorder [Unknown]
  - Multiple allergies [Unknown]
  - Pain [Recovered/Resolved]
  - Drug ineffective [Unknown]
  - Obsessive-compulsive disorder [Unknown]
  - Hyperthyroidism [Recovered/Resolved]
  - Crying [Unknown]
  - Arthropathy [Unknown]
  - Haemorrhage [Recovered/Resolved]
  - Blood cholesterol increased [Unknown]
  - Peripheral swelling [Unknown]
  - Stress [Unknown]
  - Decreased appetite [Unknown]
  - Osteopenia [Unknown]

NARRATIVE: CASE EVENT DATE: 2011
